FAERS Safety Report 4485361-X (Version None)
Quarter: 2004Q4

REPORT INFORMATION
  Report Type: 
  Country: None (occurrence: None)
  Receive Date: 20041025
  Receipt Date: 20041025
  Transmission Date: 20050328
  Serious: Yes (Life-Threatening, Hospitalization)
  Sender: FDA-Public Use
  Company Number: None

PATIENT
  Age: 32 Year
  Sex: Male
  Weight: 116.3 kg

DRUGS (15)
  1. ARA C ON DAY 1,2,3 [Suspect]
     Indication: ACUTE MYELOID LEUKAEMIA
     Dosage: 3GM/M2 Q12 INTRAVENOUS
     Route: 042
     Dates: start: 20040922, end: 20040927
  2. NEUPOGEN [Suspect]
     Indication: ACUTE MYELOID LEUKAEMIA
     Dosage: 480 MCG SUBCUTANEOUS
     Route: 058
     Dates: start: 20040928, end: 20041022
  3. DIFLUCAN [Concomitant]
  4. VALTREX [Concomitant]
  5. ATIVAN [Concomitant]
  6. ZOFRAN [Concomitant]
  7. COUMADIN [Concomitant]
  8. PROTONIX [Concomitant]
  9. KCL TAB [Concomitant]
  10. EFFEXOR [Concomitant]
  11. COLACE [Concomitant]
  12. COMPAZINE [Concomitant]
  13. TYLENOL [Concomitant]
  14. ALLOPURINOL [Concomitant]
  15. TOPRAL [Concomitant]

REACTIONS (45)
  - ABDOMINAL DISTENSION [None]
  - ABDOMINAL PAIN UPPER [None]
  - ASTHENIA [None]
  - ATELECTASIS [None]
  - BACTERIAL INFECTION [None]
  - BACTERIAL SEPSIS [None]
  - BLOOD CALCIUM DECREASED [None]
  - BLOOD ELECTROLYTES ABNORMAL [None]
  - BLOOD MAGNESIUM INCREASED [None]
  - BLOOD PHOSPHORUS INCREASED [None]
  - BLOOD URIC ACID INCREASED [None]
  - CATHETER SITE RELATED REACTION [None]
  - CHEST X-RAY ABNORMAL [None]
  - CHILLS [None]
  - CHOLECYSTITIS [None]
  - COAGULOPATHY [None]
  - COUGH [None]
  - DIARRHOEA [None]
  - DYSPNOEA [None]
  - FATIGUE [None]
  - FEBRILE NEUTROPENIA [None]
  - FEELING ABNORMAL [None]
  - HAEMODIALYSIS [None]
  - HAEMOGLOBIN DECREASED [None]
  - HYPOXIA [None]
  - INFUSION SITE PAIN [None]
  - KIDNEY ENLARGEMENT [None]
  - LACTIC ACIDOSIS [None]
  - MULTI-ORGAN FAILURE [None]
  - PCO2 DECREASED [None]
  - PERIRECTAL ABSCESS [None]
  - PROCTALGIA [None]
  - PROTHROMBIN TIME PROLONGED [None]
  - PYREXIA [None]
  - RENAL FAILURE ACUTE [None]
  - SEPTIC SHOCK [None]
  - SPUTUM CULTURE POSITIVE [None]
  - TACHYCARDIA [None]
  - TENDERNESS [None]
  - THROMBOCYTOPENIA [None]
  - TREATMENT NONCOMPLIANCE [None]
  - ULCER [None]
  - URINARY RETENTION [None]
  - VOMITING [None]
  - WHITE BLOOD CELL COUNT DECREASED [None]
